FAERS Safety Report 6819487-X (Version None)
Quarter: 2010Q3

REPORT INFORMATION
  Report Type: 
  Country: None (occurrence: None)
  Receive Date: 20100707
  Receipt Date: 20100624
  Transmission Date: 20110219
  Serious: Yes (Hospitalization, Other)
  Sender: FDA-Public Use
  Company Number: PHHY2009AU59313

PATIENT
  Sex: Male

DRUGS (3)
  1. CLOZARIL [Suspect]
     Dosage: 350 MG DAILY
  2. CLOZARIL [Suspect]
     Dosage: 400 MG
     Dates: start: 20090403
  3. CLOZARIL [Suspect]
     Dosage: 150 MG

REACTIONS (11)
  - BUNDLE BRANCH BLOCK RIGHT [None]
  - DISEASE RECURRENCE [None]
  - DRUG ABUSE [None]
  - LYMPHOMA [None]
  - MEDICATION ERROR [None]
  - PSYCHOTIC DISORDER [None]
  - RECURRENT CANCER [None]
  - SCHIZOPHRENIA [None]
  - TREATMENT NONCOMPLIANCE [None]
  - URINARY TRACT INFECTION [None]
  - VOMITING [None]
